FAERS Safety Report 10167555 (Version 1)
Quarter: 2014Q2

REPORT INFORMATION
  Report Type: Spontaneous
  Country: US (occurrence: US)
  Receive Date: 20140512
  Receipt Date: 20140512
  Transmission Date: 20141212
  Serious: Yes (Other)
  Sender: FDA-Public Use
  Company Number: US-AMGEN-USASP2014032661

PATIENT
  Sex: 0

DRUGS (3)
  1. XGEVA [Suspect]
     Indication: PRODUCT USED FOR UNKNOWN INDICATION
     Route: 065
  2. PROCRIT [Suspect]
     Indication: PRODUCT USED FOR UNKNOWN INDICATION
  3. JEVTANA [Concomitant]

REACTIONS (3)
  - Prostatic specific antigen abnormal [Unknown]
  - White blood cell count decreased [Unknown]
  - Unevaluable investigation [Unknown]
